FAERS Safety Report 7115454-X (Version None)
Quarter: 2010Q4

REPORT INFORMATION
  Report Type: 
  Country: None (occurrence: None)
  Receive Date: 20101122
  Receipt Date: 20100915
  Transmission Date: 20110411
  Serious: No
  Sender: FDA-Public Use
  Company Number: US-BAYER-201020567NA

PATIENT
  Sex: Female

DRUGS (1)
  1. CLIMARA PRO [Suspect]
     Indication: PRODUCT USED FOR UNKNOWN INDICATION
     Dosage: TREATMENT WAS OFF AND ON FOR ABOUT 1 YEAR
     Route: 062
     Dates: start: 20090101

REACTIONS (5)
  - APPLICATION SITE ERYTHEMA [None]
  - APPLICATION SITE PAIN [None]
  - APPLICATION SITE RASH [None]
  - APPLICATION SITE SWELLING [None]
  - APPLICATION SITE VESICLES [None]
